FAERS Safety Report 7724446-9 (Version None)
Quarter: 2011Q3

REPORT INFORMATION
  Report Type: 
  Country: None (occurrence: None)
  Receive Date: 20110901
  Receipt Date: 20110819
  Transmission Date: 20111222
  Serious: Yes (Hospitalization)
  Sender: FDA-Public Use
  Company Number: US-GLAXOSMITHKLINE-A0863529A

PATIENT
  Age: 53 Year
  Sex: Female
  Weight: 127.3 kg

DRUGS (9)
  1. ADVAIR DISKUS 100/50 [Concomitant]
  2. LISINOPRIL [Concomitant]
  3. METFORMIN [Concomitant]
  4. CITALOPRAM [Concomitant]
  5. INSULIN [Concomitant]
  6. LIPITOR [Concomitant]
  7. ALBUTEROL SULFATE AUTOHALER [Concomitant]
  8. AVANDIA [Suspect]
     Indication: DIABETES MELLITUS
     Dosage: 8MG TWICE PER DAY
     Route: 048
     Dates: start: 20000601, end: 20081201
  9. OMEPRAZOLE [Concomitant]

REACTIONS (3)
  - CARDIAC FAILURE CONGESTIVE [None]
  - ATRIAL FIBRILLATION [None]
  - CORONARY ARTERY DISEASE [None]
